FAERS Safety Report 6749125-6 (Version None)
Quarter: 2010Q2

REPORT INFORMATION
  Report Type: 
  Country: None (occurrence: None)
  Receive Date: 20100601
  Receipt Date: 20100514
  Transmission Date: 20101027
  Serious: Yes (Disabling, Other)
  Sender: FDA-Public Use
  Company Number: ES-CELGENEUS-144-21880-09041136

PATIENT
  Sex: Female
  Weight: 60 kg

DRUGS (4)
  1. REVLIMID [Suspect]
     Indication: MULTIPLE MYELOMA
     Route: 048
     Dates: start: 20081013, end: 20081202
  2. DEXAMETHASONE [Suspect]
     Indication: MULTIPLE MYELOMA
     Route: 065
     Dates: start: 20081013, end: 20081016
  3. FENTANYL [Concomitant]
     Indication: BONE PAIN
     Route: 065
     Dates: start: 20060625
  4. FENTANYL [Concomitant]
     Indication: SURGERY

REACTIONS (1)
  - ABNORMAL BEHAVIOUR [None]
